FAERS Safety Report 6834733-4 (Version None)
Quarter: 2010Q3

REPORT INFORMATION
  Report Type: 
  Country: None (occurrence: None)
  Receive Date: 20100712
  Receipt Date: 20070414
  Transmission Date: 20110219
  Serious: No
  Sender: FDA-Public Use
  Company Number: US-PFIZER INC-2007030374

PATIENT
  Sex: Female
  Weight: 95.25 kg

DRUGS (9)
  1. CHANTIX [Suspect]
     Indication: SMOKING CESSATION THERAPY
     Dates: start: 20070101
  2. LITHIUM [Concomitant]
  3. CLONAZEPAM [Concomitant]
  4. GEODON [Concomitant]
  5. ALL OTHER THERAPEUTIC PRODUCTS [Concomitant]
  6. LIPITOR [Concomitant]
  7. NEURONTIN [Concomitant]
  8. OXYCODONE HYDROCHLORIDE [Concomitant]
  9. CYCLOBENZAPRINE HYDROCHLORIDE [Concomitant]

REACTIONS (4)
  - CHEST PAIN [None]
  - EAR PAIN [None]
  - FLATULENCE [None]
  - MUSCLE SPASMS [None]
